FAERS Safety Report 23015035 (Version 1)
Quarter: 2023Q4

REPORT INFORMATION
  Report Type: Spontaneous
  Country: US (occurrence: US)
  Receive Date: 20231002
  Receipt Date: 20231002
  Transmission Date: 20240110
  Serious: Yes (Hospitalization)
  Sender: FDA-Public Use
  Company Number: US-INTRA-CELLULAR THERAPIES, INC.-2023ICT01324

PATIENT
  Age: 53 Year
  Sex: Female

DRUGS (5)
  1. CAPLYTA [Suspect]
     Active Substance: LUMATEPERONE
     Indication: Bipolar disorder
     Dosage: 42 MG, 1X/DAY
     Route: 048
     Dates: start: 202309, end: 202309
  2. LITHIUM [Concomitant]
     Active Substance: LITHIUM
  3. CLONAZEPAM [Concomitant]
     Active Substance: CLONAZEPAM
  4. OXCARBAZEPINE [Concomitant]
     Active Substance: OXCARBAZEPINE
  5. QUVIVIQ [Concomitant]
     Active Substance: DARIDOREXANT

REACTIONS (4)
  - Hypersensitivity [Unknown]
  - Body temperature fluctuation [Unknown]
  - Burning sensation [Unknown]
  - Nausea [Unknown]

NARRATIVE: CASE EVENT DATE: 20230901
